FAERS Safety Report 6717933-3 (Version None)
Quarter: 2010Q2

REPORT INFORMATION
  Report Type: 
  Country: None (occurrence: None)
  Receive Date: 20100510
  Receipt Date: 20100427
  Transmission Date: 20101027
  Serious: Yes (Other)
  Sender: FDA-Public Use
  Company Number: PHHY2010GR26900

PATIENT
  Age: 68 Year
  Sex: Male

DRUGS (8)
  1. RASILEZ [Suspect]
     Indication: HYPERTENSION
     Dosage: 300 MG
     Route: 048
     Dates: start: 20090410, end: 20090817
  2. METFORMIN HYDROCHLORIDE [Concomitant]
     Dosage: 1, DF DOSAGE FORM, 1, 12, HOURS
     Route: 048
  3. LIPIDIL [Concomitant]
     Dosage: 1, DF DOSAGE FORM, 1, 1, DAYS
     Route: 048
  4. ALLOPURINOL [Concomitant]
     Dosage: 300 MG, ORAL, DOSAGE: 5, DF DOSAGE FORM, 1, 1, DAYS
     Route: 048
  5. COAPROVEL [Concomitant]
     Dosage: 1, DF DOSAGE FORM, 1, 1, DAYS
     Route: 048
  6. MANYPER [Concomitant]
     Dosage: 1, DF DOSAGE FORM, 1, 1, DAYS
     Route: 048
  7. SINTROM [Concomitant]
     Dosage: UNSPECIFIED UNIT, UNSPECIFIED INTERVAL
     Route: 048
  8. LOBIVON [Concomitant]
     Dosage: 5, DF DOSAGE FORM, 1, 1, DAYS
     Route: 048

REACTIONS (1)
  - POLYCYTHAEMIA [None]
